FAERS Safety Report 4775586-8 (Version None)
Quarter: 2005Q3

REPORT INFORMATION
  Report Type: 
  Country: None (occurrence: None)
  Receive Date: 20050919
  Receipt Date: 20050919
  Transmission Date: 20060218
  Serious: No
  Sender: FDA-Public Use
  Company Number: None

PATIENT
  Age: 55 Year
  Sex: Male
  Weight: 101 kg

DRUGS (1)
  1. CIALIS [Suspect]
     Dosage: 1 WEEKS APART PO
     Route: 048

REACTIONS (1)
  - HEADACHE [None]
